FAERS Safety Report 6623651-2 (Version None)
Quarter: 2010Q1

REPORT INFORMATION
  Report Type: 
  Country: None (occurrence: None)
  Receive Date: 20100310
  Receipt Date: 20091111
  Transmission Date: 20100710
  Serious: No
  Sender: FDA-Public Use
  Company Number: US-BIOGENIDEC-2009BI036583

PATIENT
  Sex: Female

DRUGS (3)
  1. AVONEX [Suspect]
     Indication: MULTIPLE SCLEROSIS
     Route: 030
     Dates: start: 19990101
  2. AVONEX [Suspect]
     Route: 030
  3. AVONEX [Suspect]
     Route: 030

REACTIONS (3)
  - INFLUENZA LIKE ILLNESS [None]
  - VIRAL INFECTION [None]
  - VISUAL IMPAIRMENT [None]
